FAERS Safety Report 19175679 (Version 4)
Quarter: 2021Q3

REPORT INFORMATION
  Report Type: Spontaneous
  Country: GB (occurrence: GB)
  Receive Date: 20210423
  Receipt Date: 20210913
  Transmission Date: 20211014
  Serious: Yes (Hospitalization, Other)
  Sender: FDA-Public Use
  Company Number: GB-TEVA-2021-GB-1902794

PATIENT
  Age: 50 Year
  Sex: Female

DRUGS (2)
  1. LIOTHYRONINE SODIUM. [Suspect]
     Active Substance: LIOTHYRONINE SODIUM
     Indication: PRODUCT USED FOR UNKNOWN INDICATION
     Route: 065
     Dates: end: 20210825
  2. LEVOTHYROXINE. [Suspect]
     Active Substance: LEVOTHYROXINE
     Route: 065

REACTIONS (43)
  - Conjunctival haemorrhage [Unknown]
  - Ear haemorrhage [Unknown]
  - Blindness [Unknown]
  - Tremor [Unknown]
  - Restlessness [Unknown]
  - Burning sensation [Unknown]
  - Heart rate irregular [Unknown]
  - Thyroid cancer [Unknown]
  - Hypersensitivity [Unknown]
  - Fluid retention [Unknown]
  - Illness [Unknown]
  - Epistaxis [Recovered/Resolved]
  - Product dispensing error [Unknown]
  - Heat stroke [Not Recovered/Not Resolved]
  - Dysphonia [Unknown]
  - Gastrointestinal disorder [Unknown]
  - Hemiparesis [Unknown]
  - Atrial fibrillation [Unknown]
  - Eye haemorrhage [Unknown]
  - Cerebrovascular accident [Unknown]
  - Rash [Unknown]
  - Muscle spasms [Unknown]
  - Alopecia [Unknown]
  - Dyspnoea [Unknown]
  - Impaired work ability [Unknown]
  - Cerebral haemorrhage [Unknown]
  - Weight decreased [Unknown]
  - Vomiting [Unknown]
  - Weight fluctuation [Unknown]
  - Visual impairment [Not Recovered/Not Resolved]
  - Fatigue [Unknown]
  - Seizure [Not Recovered/Not Resolved]
  - Thyroid stimulating hormone deficiency [Not Recovered/Not Resolved]
  - Hypersomnia [Unknown]
  - Temperature intolerance [Unknown]
  - Syncope [Recovered/Resolved]
  - Feeling abnormal [Unknown]
  - Emotional distress [Unknown]
  - Insomnia [Unknown]
  - Pyrexia [Unknown]
  - Abdominal distension [Unknown]
  - Hyperhidrosis [Unknown]
  - Eye disorder [Unknown]

NARRATIVE: CASE EVENT DATE: 202103
